FAERS Safety Report 8145299-3 (Version None)
Quarter: 2012Q1

REPORT INFORMATION
  Report Type: 
  Country: None (occurrence: None)
  Receive Date: 20120217
  Receipt Date: 20120210
  Transmission Date: 20120608
  Serious: Yes (Other)
  Sender: FDA-Public Use
  Company Number: US-US-EMD SERONO, INC.-7085860

PATIENT
  Sex: Female

DRUGS (2)
  1. NEURONTIN [Concomitant]
  2. REBIF [Suspect]
     Indication: MULTIPLE SCLEROSIS
     Route: 058
     Dates: start: 20110706, end: 20111201

REACTIONS (1)
  - INTERVERTEBRAL DISC PROTRUSION [None]
